FAERS Safety Report 24774886 (Version 2)
Quarter: 2025Q1

REPORT INFORMATION
  Report Type: Spontaneous
  Country: US (occurrence: US)
  Receive Date: 20241226
  Receipt Date: 20250109
  Transmission Date: 20250409
  Serious: Yes (Other)
  Sender: TEVA
  Company Number: US-TEVA-VS-3277237

PATIENT
  Age: 55 Year
  Sex: Male

DRUGS (6)
  1. FLUTICASONE [Interacting]
     Active Substance: FLUTICASONE
     Indication: Asthma
     Route: 055
  2. FLUTICASONE [Interacting]
     Active Substance: FLUTICASONE
     Indication: Seasonal allergy
  3. AMLODIPINE [Suspect]
     Active Substance: AMLODIPINE BESYLATE
     Indication: Blood pressure increased
     Route: 065
     Dates: start: 202303
  4. CARVEDILOL [Suspect]
     Active Substance: CARVEDILOL
     Indication: Blood pressure increased
     Route: 065
     Dates: start: 202303
  5. HYDROCHLOROTHIAZIDE [Suspect]
     Active Substance: HYDROCHLOROTHIAZIDE
     Indication: Blood pressure increased
     Route: 065
     Dates: start: 202303
  6. COBICISTAT\DARUNAVIR ETHANOLATE [Interacting]
     Active Substance: COBICISTAT\DARUNAVIR ETHANOLATE
     Indication: HIV infection
     Route: 065

REACTIONS (4)
  - Cushing^s syndrome [Unknown]
  - Drug ineffective [Unknown]
  - Drug interaction [Unknown]
  - Blood pressure increased [Unknown]

NARRATIVE: CASE EVENT DATE: 20230301
